FAERS Safety Report 10737925 (Version 1)
Quarter: 2015Q1

REPORT INFORMATION
  Report Type: Spontaneous
  Country: US (occurrence: US)
  Receive Date: 20150126
  Receipt Date: 20150126
  Transmission Date: 20150721
  Serious: Yes (Other)
  Sender: FDA-Public Use
  Company Number: US-SA-2014SA129236

PATIENT
  Age: 88 Year
  Sex: Male
  Weight: 88 kg

DRUGS (32)
  1. ASMANEX [Concomitant]
     Active Substance: MOMETASONE FUROATE
     Dosage: DOSE: 2; RESPIRATORY
  2. INSULIN ASPART [Concomitant]
     Active Substance: INSULIN ASPART
     Route: 058
  3. PRINIVIL [Concomitant]
     Active Substance: LISINOPRIL
  4. OCUVITE [Concomitant]
     Active Substance: VITAMINS
     Route: 048
  5. NEXIUM [Concomitant]
     Active Substance: ESOMEPRAZOLE MAGNESIUM
     Route: 048
  6. KLOR-CON [Concomitant]
     Active Substance: POTASSIUM CHLORIDE
     Route: 048
  7. LEVOFLOXACIN. [Concomitant]
     Active Substance: LEVOFLOXACIN
     Route: 048
  8. MAGNESIUM OXIDE. [Concomitant]
     Active Substance: MAGNESIUM OXIDE
     Route: 048
  9. CARDIZEM [Concomitant]
     Active Substance: DILTIAZEM HYDROCHLORIDE
     Route: 048
  10. FLONASE [Concomitant]
     Active Substance: FLUTICASONE PROPIONATE
     Route: 045
  11. ALLEGRA [Concomitant]
     Active Substance: FEXOFENADINE HYDROCHLORIDE
  12. METFORMIN [Concomitant]
     Active Substance: METFORMIN HYDROCHLORIDE
     Route: 048
  13. PREDNISONE. [Concomitant]
     Active Substance: PREDNISONE
  14. LIPITOR [Concomitant]
     Active Substance: ATORVASTATIN CALCIUM
  15. PLAVIX [Concomitant]
     Active Substance: CLOPIDOGREL BISULFATE
     Route: 048
  16. DEXTROSE MONOHYDRATE. [Concomitant]
     Active Substance: DEXTROSE MONOHYDRATE
     Route: 042
  17. ALBUTEROL. [Concomitant]
     Active Substance: ALBUTEROL
     Dosage: RESPIRATORY
  18. ASPIRIN. [Concomitant]
     Active Substance: ASPIRIN
  19. ALL OTHER THERAPEUTIC PRODUCTS [Concomitant]
     Active Substance: UNSPECIFIED INGREDIENT
     Route: 048
  20. ENOXAPARIN SODIUM. [Concomitant]
     Active Substance: ENOXAPARIN SODIUM
     Route: 058
  21. SPIRIVA [Concomitant]
     Active Substance: TIOTROPIUM BROMIDE MONOHYDRATE
     Dosage: RESPIRATORY
  22. LASIX [Suspect]
     Active Substance: FUROSEMIDE
     Route: 048
  23. MUCINEX [Concomitant]
     Active Substance: GUAIFENESIN
  24. PREDNISOLONE ACETATE. [Concomitant]
     Active Substance: PREDNISOLONE ACETATE
     Dosage: STRENGTH: 1 %
     Route: 047
  25. XALATAN [Concomitant]
     Active Substance: LATANOPROST
     Dosage: STRENGTH: 0.005 %
     Route: 047
  26. SINGULAIR [Concomitant]
     Active Substance: MONTELUKAST SODIUM
     Route: 048
  27. COMBIVENT [Concomitant]
     Active Substance: ALBUTEROL SULFATE\IPRATROPIUM BROMIDE
     Dosage: RESPIRATORY
  28. VITAMIN D [Concomitant]
     Active Substance: CHOLECALCIFEROL
     Route: 048
  29. MOXIFLOXACIN HYDROCHLORIDE. [Concomitant]
     Active Substance: MOXIFLOXACIN HYDROCHLORIDE
     Dosage: DOSE: 1-4 TIMES
  30. TRUSOPT [Concomitant]
     Active Substance: DORZOLAMIDE HYDROCHLORIDE
     Dosage: STRENGTH: 2 %
     Route: 047
  31. HYDROCORTISONE SODIUM SUCCINATE [Concomitant]
     Active Substance: HYDROCORTISONE SODIUM SUCCINATE
     Route: 042
  32. SODIUM CHLORIDE. [Concomitant]
     Active Substance: SODIUM CHLORIDE
     Dosage: STRENGTH: 0.65 %

REACTIONS (1)
  - Dehydration [Unknown]
